FAERS Safety Report 14297838 (Version 1)
Quarter: 2017Q4

REPORT INFORMATION
  Report Type: Spontaneous
  Country: US (occurrence: US)
  Receive Date: 20171218
  Receipt Date: 20171218
  Transmission Date: 20180321
  Serious: Yes (Other)
  Sender: FDA-Public Use
  Company Number: US-PFIZER INC-2017535046

PATIENT
  Age: 58 Year
  Sex: Male
  Weight: 113.4 kg

DRUGS (1)
  1. GENOTROPIN MQ [Suspect]
     Active Substance: SOMATROPIN
     Indication: BLOOD GROWTH HORMONE DECREASED
     Dosage: 0.6MG ONCE A DAY INJECTION, VARIOUS SITES WHICH INCLUDES BELLY
     Dates: end: 2017

REACTIONS (3)
  - Monoclonal B-cell lymphocytosis [Not Recovered/Not Resolved]
  - White blood cell count increased [Unknown]
  - Lymphoma [Unknown]

NARRATIVE: CASE EVENT DATE: 2017
